FAERS Safety Report 19407121 (Version 1)
Quarter: 2021Q2

REPORT INFORMATION
  Report Type: Report from Study
  Country: US (occurrence: US)
  Receive Date: 20210611
  Receipt Date: 20210611
  Transmission Date: 20210717
  Serious: Yes (Death, Other)
  Sender: FDA-Public Use
  Company Number: US-JAZZ-2021-US-010685

PATIENT
  Age: 64 Year
  Sex: Male

DRUGS (1)
  1. LURBINECTEDIN [Suspect]
     Active Substance: LURBINECTEDIN
     Indication: SMALL CELL LUNG CANCER RECURRENT
     Dosage: UNK
     Dates: start: 20210121, end: 20210325

REACTIONS (1)
  - Death [Fatal]

NARRATIVE: CASE EVENT DATE: 20210426
